FAERS Safety Report 9985219 (Version 1)
Quarter: 2014Q1

REPORT INFORMATION
  Report Type: Report from Study
  Country: US (occurrence: US)
  Receive Date: 20140307
  Receipt Date: 20140307
  Transmission Date: 20141002
  Serious: No
  Sender: FDA-Public Use
  Company Number: US-ABBVIE-13P-163-1184964-00

PATIENT
  Age: 80 Year
  Sex: Male

DRUGS (11)
  1. HUMIRA [Suspect]
     Indication: COLITIS ULCERATIVE
     Dates: start: 20131010
  2. LIPITOR [Concomitant]
     Indication: BLOOD CHOLESTEROL INCREASED
     Dosage: AT BEDTIME
  3. FENOFIBRATE [Concomitant]
     Indication: BLOOD CHOLESTEROL INCREASED
  4. CARVEDILOL [Concomitant]
     Indication: CARDIAC DISORDER
  5. LOSARTAN [Concomitant]
     Indication: CARDIAC DISORDER
  6. MERCAPTOPURINE [Concomitant]
     Indication: COLITIS ULCERATIVE
  7. APRISO [Concomitant]
     Indication: COLITIS ULCERATIVE
  8. GLYBURIDE [Concomitant]
     Indication: DIABETES MELLITUS
  9. OMEPRAZOLE [Concomitant]
     Indication: GASTROOESOPHAGEAL REFLUX DISEASE
  10. METROFORMIN [Concomitant]
     Indication: DIABETES MELLITUS
  11. ALENDRONATE [Concomitant]
     Indication: OSTEOPOROSIS PROPHYLAXIS

REACTIONS (2)
  - Asthenia [Recovering/Resolving]
  - Bronchitis [Recovering/Resolving]
